FAERS Safety Report 25169209 (Version 1)
Quarter: 2025Q2

REPORT INFORMATION
  Report Type: Spontaneous
  Country: HU (occurrence: HU)
  Receive Date: 20250407
  Receipt Date: 20250407
  Transmission Date: 20250717
  Serious: Yes (Life-Threatening)
  Sender: NOVARTIS
  Company Number: HU-ROCHE-10000243955

PATIENT

DRUGS (2)
  1. KESIMPTA [Suspect]
     Active Substance: OFATUMUMAB
     Indication: Multiple sclerosis
     Route: 065
  2. OCREVUS [Suspect]
     Active Substance: OCRELIZUMAB
     Indication: Multiple sclerosis
     Route: 065

REACTIONS (4)
  - Upper respiratory tract infection [Unknown]
  - Sepsis [Unknown]
  - Urinary tract infection [Unknown]
  - Lactic acidosis [Unknown]
